FAERS Safety Report 5713069-9 (Version None)
Quarter: 2008Q2

REPORT INFORMATION
  Report Type: 
  Country: None (occurrence: None)
  Receive Date: 20080422
  Receipt Date: 20070529
  Transmission Date: 20081010
  Serious: Yes (Other)
  Sender: FDA-Public Use
  Company Number: SEWYE750430MAY07

PATIENT
  Sex: Female
  Weight: 65 kg

DRUGS (1)
  1. EFFEXOR [Suspect]
     Indication: DEPRESSION
     Dosage: 150 -225 MG DAILY
     Route: 048
     Dates: start: 20010901, end: 20060901

REACTIONS (2)
  - DENTAL CARIES [None]
  - TOOTH EROSION [None]
